FAERS Safety Report 17783798 (Version 1)
Quarter: 2020Q2

REPORT INFORMATION
  Report Type: Spontaneous
  Country: US (occurrence: US)
  Receive Date: 20200514
  Receipt Date: 20200514
  Transmission Date: 20200714
  Serious: Yes (Other)
  Sender: FDA-Public Use
  Company Number: US-PFIZER INC-2020192473

PATIENT
  Sex: Male

DRUGS (1)
  1. ALPRAZOLAM. [Suspect]
     Active Substance: ALPRAZOLAM
     Dosage: 0.5 MG

REACTIONS (4)
  - Dizziness [Unknown]
  - Retinal detachment [Unknown]
  - Fall [Unknown]
  - Mental disorder [Unknown]

NARRATIVE: CASE EVENT DATE: 2015
